FAERS Safety Report 21146988 (Version 1)
Quarter: 2022Q3

REPORT INFORMATION
  Report Type: Spontaneous
  Country: US (occurrence: None)
  Receive Date: 20220728
  Receipt Date: 20220728
  Transmission Date: 20221027
  Serious: No
  Sender: FDA-Public Use
  Company Number: None

PATIENT
  Sex: Female
  Weight: 93.89 kg

DRUGS (9)
  1. PIQRAY [Suspect]
     Active Substance: ALPELISIB
     Indication: Breast cancer female
     Dosage: 200 MG DAILY ORAL
     Route: 048
  2. ELIQUIS [Concomitant]
     Active Substance: APIXABAN
  3. FASLODEX [Concomitant]
     Active Substance: FULVESTRANT
  4. FLONASE [Concomitant]
     Active Substance: FLUTICASONE PROPIONATE
  5. ALLERGY RELIEF [Concomitant]
  6. PROCHLORPERAZINE [Concomitant]
     Active Substance: PROCHLORPERAZINE
  7. ROBAXIN [Concomitant]
     Active Substance: METHOCARBAMOL
  8. ZOFRAN [Concomitant]
     Active Substance: ONDANSETRON HYDROCHLORIDE
  9. MORPHINE [Concomitant]
     Active Substance: MORPHINE

REACTIONS (1)
  - Disease progression [None]
